FAERS Safety Report 12545198 (Version 2)
Quarter: 2016Q3

REPORT INFORMATION
  Report Type: Spontaneous
  Country: US (occurrence: US)
  Receive Date: 20160711
  Receipt Date: 20160715
  Transmission Date: 20161109
  Serious: No
  Sender: FDA-Public Use
  Company Number: US-PFIZER INC-2016337611

PATIENT
  Age: 65 Year
  Sex: Female

DRUGS (1)
  1. EPIPEN [Suspect]
     Active Substance: EPINEPHRINE
     Indication: ARTHROPOD STING
     Dosage: 0.3 MG, UNK
     Dates: start: 20160604

REACTIONS (13)
  - Product expiration date issue [Unknown]
  - Expired product administered [Unknown]
  - Injection site swelling [Unknown]
  - Injection site bruising [Unknown]
  - Accidental exposure to product [Unknown]
  - Injection site pain [Unknown]
  - Injection site coldness [Unknown]
  - Injection site hypoaesthesia [Unknown]
  - Injection site injury [Unknown]
  - Palpitations [Unknown]
  - Product colour issue [Unknown]
  - Pain in extremity [Unknown]
  - Heart rate increased [Unknown]

NARRATIVE: CASE EVENT DATE: 20160604
